FAERS Safety Report 12982955 (Version 1)
Quarter: 2016Q4

REPORT INFORMATION
  Report Type: Spontaneous
  Country: US (occurrence: US)
  Receive Date: 20161129
  Receipt Date: 20161129
  Transmission Date: 20170207
  Serious: No
  Sender: FDA-Public Use
  Company Number: US-MALLINCKRODT-T201506051

PATIENT
  Age: 39 Year
  Sex: Female
  Weight: 73 kg

DRUGS (3)
  1. FENTANYL TRANSDERMAL SYSTEM [Suspect]
     Active Substance: FENTANYL
     Dosage: 50 MCG/HR ONCE EVERY 48 HOURS
     Dates: start: 201509
  2. FENTANYL TRANSDERMAL SYSTEM [Suspect]
     Active Substance: FENTANYL
     Indication: PAIN
     Dosage: 50 MCG/HR ONCE EVERY 72 HOURS
     Route: 062
     Dates: start: 201508, end: 201509
  3. OXYCODONE [Concomitant]
     Active Substance: OXYCODONE
     Indication: BREAKTHROUGH PAIN

REACTIONS (7)
  - Feeling abnormal [Not Recovered/Not Resolved]
  - Drug withdrawal syndrome [Not Recovered/Not Resolved]
  - Application site pruritus [Not Recovered/Not Resolved]
  - Drug ineffective [Not Recovered/Not Resolved]
  - Therapeutic response delayed [Recovering/Resolving]
  - Product adhesion issue [Recovered/Resolved]
  - Drug effect decreased [Recovering/Resolving]

NARRATIVE: CASE EVENT DATE: 201508
